FAERS Safety Report 4315958-9 (Version None)
Quarter: 2004Q1

REPORT INFORMATION
  Report Type: 
  Country: None (occurrence: None)
  Receive Date: 20040310
  Receipt Date: 20040226
  Transmission Date: 20041129
  Serious: Yes (Hospitalization)
  Sender: FDA-Public Use
  Company Number: 2004PK00400

PATIENT
  Age: 56 Year
  Sex: Female
  Weight: 82 kg

DRUGS (3)
  1. NOLVADEX [Suspect]
     Indication: BREAST CANCER
     Dosage: 20 MG DAILY PO
     Route: 048
     Dates: start: 20020913, end: 20040126
  2. ZOLADEX [Suspect]
     Indication: BREAST CANCER
     Dosage: 3.6 MG MONTH SQ
     Dates: start: 20020913
  3. ZOLEDRONATE [Suspect]
     Indication: BREAST CANCER
     Dates: start: 20020913

REACTIONS (7)
  - BILIARY COLIC [None]
  - CHOLELITHIASIS [None]
  - CONDITION AGGRAVATED [None]
  - DISEASE RECURRENCE [None]
  - HEPATITIS [None]
  - HEPATOCELLULAR DAMAGE [None]
  - PANCREATITIS [None]
